FAERS Safety Report 23972117 (Version 1)
Quarter: 2024Q2

REPORT INFORMATION
  Report Type: Spontaneous
  Country: US (occurrence: None)
  Receive Date: 20240612
  Receipt Date: 20240612
  Transmission Date: 20240717
  Serious: Yes (unspecified)
  Sender: FDA-Public Use
  Company Number: None

PATIENT
  Age: 44 Year
  Sex: Male
  Weight: 63 kg

DRUGS (16)
  1. HERBALS\MUSHROOMS UNSPECIFIED [Suspect]
     Active Substance: HERBALS\MUSHROOMS UNSPECIFIED
     Dates: start: 20240601, end: 20240601
  2. UBRELVY [Concomitant]
     Active Substance: UBROGEPANT
  3. BUPROPION [Concomitant]
     Active Substance: BUPROPION
  4. ATOMOXETINE [Concomitant]
     Active Substance: ATOMOXETINE\ATOMOXETINE HYDROCHLORIDE
  5. METHOCARBAMOL [Concomitant]
     Active Substance: METHOCARBAMOL
  6. HYDROYZINE PAMOATE [Concomitant]
  7. PAROXETINE [Concomitant]
     Active Substance: PAROXETINE
  8. CETIRIZINE [Concomitant]
     Active Substance: CETIRIZINE HYDROCHLORIDE
  9. FAMOTIDINE [Concomitant]
     Active Substance: FAMOTIDINE
  10. EXCEDRUBE [Concomitant]
  11. IBUPROFEN [Concomitant]
     Active Substance: IBUPROFEN
  12. VALSARTAN [Concomitant]
     Active Substance: VALSARTAN
  13. MAGNESIUM [Concomitant]
  14. GLYCINATE [Concomitant]
  15. VITAMIN D3 [Concomitant]
     Active Substance: CHOLECALCIFEROL
  16. PROBIOTICS NOS [Concomitant]
     Active Substance: PROBIOTICS NOS

REACTIONS (9)
  - Gastrointestinal pain [None]
  - Nausea [None]
  - Vomiting [None]
  - Vertigo [None]
  - Fall [None]
  - Muscle spasticity [None]
  - Hyperaesthesia [None]
  - Heart rate increased [None]
  - Hyperhidrosis [None]

NARRATIVE: CASE EVENT DATE: 20240601
